FAERS Safety Report 10828799 (Version 2)
Quarter: 2016Q1

REPORT INFORMATION
  Report Type: Spontaneous
  Country: PR (occurrence: PR)
  Receive Date: 20150219
  Receipt Date: 20160125
  Transmission Date: 20160525
  Serious: No
  Sender: FDA-Public Use
  Company Number: PR-ABBVIE-14P-131-1205339-00

PATIENT
  Sex: Male
  Weight: 113.5 kg

DRUGS (1)
  1. HUMIRA [Suspect]
     Active Substance: ADALIMUMAB
     Indication: PSORIASIS
     Route: 058
     Dates: start: 2010, end: 201402

REACTIONS (6)
  - Burning sensation [Unknown]
  - Herpes zoster [Recovered/Resolved]
  - Blister [Unknown]
  - Pruritus [Unknown]
  - Myalgia [Unknown]
  - Paraesthesia [Unknown]
